FAERS Safety Report 12763189 (Version 1)
Quarter: 2016Q3

REPORT INFORMATION
  Report Type: Spontaneous
  Country: US (occurrence: US)
  Receive Date: 20160915
  Receipt Date: 20160915
  Transmission Date: 20161109
  Serious: No
  Sender: FDA-Public Use
  Company Number: None

PATIENT
  Age: 13 Year
  Sex: Female

DRUGS (1)
  1. TOBI PODHALER [Suspect]
     Active Substance: TOBRAMYCIN
     Indication: CYSTIC FIBROSIS
     Dosage: TOBI PODHALER - 112MG - PO - BID ONE MONTH ON AND ONE
     Route: 048

REACTIONS (1)
  - Weight decreased [None]

NARRATIVE: CASE EVENT DATE: 20160801
